FAERS Safety Report 13589979 (Version 1)
Quarter: 2017Q2

REPORT INFORMATION
  Report Type: Spontaneous
  Country: NL (occurrence: NL)
  Receive Date: 20170530
  Receipt Date: 20170530
  Transmission Date: 20170830
  Serious: Yes (Death, Hospitalization)
  Sender: FDA-Public Use
  Company Number: NL-FRESENIUS KABI-FK201704415

PATIENT
  Age: 40 Year
  Sex: Male

DRUGS (2)
  1. SODIUM BICARBONATE (MANUFACTURER UNKNOWN) [Suspect]
     Active Substance: SODIUM BICARBONATE
     Indication: DIABETIC KETOACIDOSIS
     Route: 065
  2. INSULIN [Suspect]
     Active Substance: INSULIN NOS
     Indication: DIABETIC KETOACIDOSIS

REACTIONS (1)
  - Brain oedema [Fatal]
